FAERS Safety Report 21035657 (Version 6)
Quarter: 2024Q3

REPORT INFORMATION
  Report Type: Spontaneous
  Country: FR (occurrence: FR)
  Receive Date: 20220701
  Receipt Date: 20240723
  Transmission Date: 20241017
  Serious: Yes (Hospitalization, Congenital Anomaly)
  Sender: VERTEX
  Company Number: FR-VERTEX PHARMACEUTICALS-2022-009644

PATIENT
  Sex: Male
  Weight: 3 kg

DRUGS (2)
  1. ELEXACAFTOR\IVACAFTOR\TEZACAFTOR [Suspect]
     Active Substance: ELEXACAFTOR\IVACAFTOR\TEZACAFTOR
     Indication: Cystic fibrosis
     Dosage: TWO TABS (75 MG IVACAFTOR/ 50 MG TEZACAFTOR/ 100 MG ELEXACAFTOR)
     Route: 048
  2. KALYDECO [Suspect]
     Active Substance: IVACAFTOR
     Indication: Cystic fibrosis
     Dosage: 1 TABLET
     Route: 048

REACTIONS (8)
  - Supraventricular tachycardia [Not Recovered/Not Resolved]
  - Staphylococcal infection [Recovered/Resolved]
  - CFTR gene mutation [Unknown]
  - Respiratory distress [Unknown]
  - Apnoea [Unknown]
  - Cough [Unknown]
  - Gastrooesophageal reflux disease [Unknown]
  - Viral infection [Recovered/Resolved]

NARRATIVE: CASE EVENT DATE: 20220101
